FAERS Safety Report 5868749-1 (Version None)
Quarter: 2008Q3

REPORT INFORMATION
  Report Type: 
  Country: None (occurrence: None)
  Receive Date: 20080903
  Receipt Date: 20080825
  Transmission Date: 20090109
  Serious: Yes (Hospitalization)
  Sender: FDA-Public Use
  Company Number: PHHO2008JP10322

PATIENT

DRUGS (2)
  1. ICL670A ICL+DISTAB [Suspect]
     Indication: HAEMOSIDEROSIS
     Dosage: 875 MG DAILY
     Route: 048
     Dates: start: 20080310
  2. ICL670A ICL+DISTAB [Suspect]
     Dosage: 250 MG, DAILY
     Route: 048

REACTIONS (4)
  - ANAEMIA [None]
  - FAECES DISCOLOURED [None]
  - GASTROINTESTINAL ANGIODYSPLASIA [None]
  - LOWER GASTROINTESTINAL HAEMORRHAGE [None]
